FAERS Safety Report 7863623-3 (Version None)
Quarter: 2011Q4

REPORT INFORMATION
  Report Type: 
  Country: None (occurrence: None)
  Receive Date: 20111027
  Receipt Date: 20111014
  Transmission Date: 20120403
  Serious: Yes (Other)
  Sender: FDA-Public Use
  Company Number: FR-MYLANLABS-2011S1021457

PATIENT
  Age: 49 Year
  Sex: Female
  Weight: 87 kg

DRUGS (5)
  1. PAROXETINE HCL [Suspect]
     Indication: DEPRESSION
     Dates: start: 20090810, end: 20110604
  2. TAMOXIFEN CITRATE [Suspect]
     Indication: BREAST CANCER
     Dates: start: 20090810
  3. ZOPICLONE [Concomitant]
     Indication: INSOMNIA
     Dates: start: 20090810, end: 20110510
  4. ZOLPIDEM [Concomitant]
     Indication: INSOMNIA
     Dates: start: 20110512
  5. MICARDIS [Concomitant]
     Indication: PULMONARY ARTERIAL HYPERTENSION
     Dates: start: 20090810

REACTIONS (1)
  - DRUG INTERACTION [None]
